FAERS Safety Report 8487360-X (Version None)
Quarter: 2012Q2

REPORT INFORMATION
  Report Type: 
  Country: None (occurrence: None)
  Receive Date: 20120628
  Receipt Date: 20120628
  Transmission Date: 20120825
  Serious: Yes (Other)
  Sender: FDA-Public Use
  Company Number: None

PATIENT
  Age: 37 Year
  Sex: Female
  Weight: 83.1443 kg

DRUGS (7)
  1. FERAHEME [Suspect]
     Indication: MALABSORPTION
     Dosage: IV
     Route: 042
     Dates: start: 20120302, end: 20120303
  2. FERAHEME [Suspect]
     Indication: ANAEMIA
     Dosage: IV
     Route: 042
     Dates: start: 20120302, end: 20120303
  3. FLOVENT [Concomitant]
  4. CALCIUM SUPPLEMENTS [Concomitant]
  5. CENTRUM MV [Concomitant]
  6. NORCO [Concomitant]
  7. ALBUTEROL [Concomitant]

REACTIONS (9)
  - FEELING ABNORMAL [None]
  - DEFAECATION URGENCY [None]
  - TREMOR [None]
  - UNRESPONSIVE TO STIMULI [None]
  - PRURITUS GENERALISED [None]
  - HYPOTENSION [None]
  - OXYGEN SATURATION DECREASED [None]
  - SOMNOLENCE [None]
  - BLOOD PRESSURE IMMEASURABLE [None]
